FAERS Safety Report 9719128 (Version 1)
Quarter: 2013Q4

REPORT INFORMATION
  Report Type: Spontaneous
  Country: AU (occurrence: AU)
  Receive Date: 20131127
  Receipt Date: 20131127
  Transmission Date: 20140711
  Serious: Yes (Other)
  Sender: FDA-Public Use
  Company Number: PHHY2013AU135872

PATIENT
  Age: 40 Year
  Sex: Male

DRUGS (2)
  1. MIRTAZAPINE [Suspect]
     Dosage: 1.8 G, UNK
  2. ALCOHOL [Suspect]
     Dosage: 2 L, UNK

REACTIONS (3)
  - Rhabdomyolysis [Unknown]
  - Suicide attempt [Unknown]
  - Intentional overdose [Unknown]
